FAERS Safety Report 6665468-9 (Version None)
Quarter: 2010Q1

REPORT INFORMATION
  Report Type: 
  Country: None (occurrence: None)
  Receive Date: 20100325
  Receipt Date: 20091105
  Transmission Date: 20100710
  Serious: No
  Sender: FDA-Public Use
  Company Number: 2009-00717

PATIENT
  Age: 57 Year
  Sex: Female
  Weight: 63.5036 kg

DRUGS (4)
  1. COLD REMEDY ORAL MIST [Suspect]
     Dosage: 1-2 X/DAY-ONGOING
  2. HRT [Concomitant]
  3. ASPIRIN [Concomitant]
  4. MULTI-VITAMIN [Concomitant]

REACTIONS (1)
  - AGEUSIA [None]
